FAERS Safety Report 26151792 (Version 1)
Quarter: 2025Q4

REPORT INFORMATION
  Report Type: Report from Study
  Country: US (occurrence: US)
  Receive Date: 20251214
  Receipt Date: 20251214
  Transmission Date: 20260118
  Serious: Yes (Other)
  Sender: BRISTOL-MYERS SQUIBB COMPANY
  Company Number: US-BRISTOL-MYERS SQUIBB COMPANY-2025-121020

PATIENT
  Age: 33 Year
  Sex: Female

DRUGS (1)
  1. COBENFY [Interacting]
     Active Substance: TROSPIUM CHLORIDE\XANOMELINE
     Indication: Schizophrenia
     Dosage: DOSE : 125 MG/30 MG;
     Route: 048

REACTIONS (11)
  - Nausea [Unknown]
  - Somnolence [Unknown]
  - Fatigue [Recovering/Resolving]
  - Vision blurred [Unknown]
  - Abdominal distension [Unknown]
  - Feeling abnormal [Unknown]
  - Flatulence [Unknown]
  - Sleep disorder [Unknown]
  - Gastrointestinal disorder [Unknown]
  - Gallbladder disorder [Unknown]
  - Drug interaction [Unknown]
